FAERS Safety Report 18143066 (Version 1)
Quarter: 2020Q3

REPORT INFORMATION
  Report Type: Spontaneous
  Country: CH (occurrence: CH)
  Receive Date: 20200812
  Receipt Date: 20200812
  Transmission Date: 20201103
  Serious: Yes (Other)
  Sender: FDA-Public Use
  Company Number: CH-REGENERON PHARMACEUTICALS, INC.-2020-69951

PATIENT

DRUGS (2)
  1. EYLEA [Suspect]
     Active Substance: AFLIBERCEPT
     Indication: NEOVASCULAR AGE-RELATED MACULAR DEGENERATION
     Dosage: 0.05 ML, ONCE, INJECTION NO. 41
     Dates: start: 20200619, end: 20200619
  2. YELLOX [Concomitant]
     Active Substance: BROMFENAC SODIUM
     Indication: PRODUCT USED FOR UNKNOWN INDICATION
     Dosage: 1 DROP, BID

REACTIONS (2)
  - Blindness transient [Recovered/Resolved]
  - Intraocular pressure increased [Recovered/Resolved]

NARRATIVE: CASE EVENT DATE: 20200619
